FAERS Safety Report 10245396 (Version 1)
Quarter: 2014Q2

REPORT INFORMATION
  Report Type: Report from Study
  Country: US (occurrence: US)
  Receive Date: 20140618
  Receipt Date: 20140618
  Transmission Date: 20141212
  Serious: Yes (Other)
  Sender: FDA-Public Use
  Company Number: PHHO2014US008376

PATIENT
  Age: 62 Year
  Sex: Female
  Weight: 88.2 kg

DRUGS (12)
  1. AFINITOR [Suspect]
     Indication: BREAST CANCER
     Dosage: 5 MG DAILY
     Route: 048
     Dates: start: 20140604, end: 20140605
  2. AFINITOR [Suspect]
     Dosage: 5 MG DAILY
     Route: 048
     Dates: start: 20140607
  3. CGS 20267 [Suspect]
     Indication: BREAST CANCER
     Dosage: 2.5 MG, QD
     Route: 048
     Dates: start: 20130814
  4. LAPATINIB [Suspect]
     Indication: BREAST CANCER
     Dosage: UNK
     Route: 048
     Dates: start: 20130814
  5. METFORMIN [Concomitant]
     Dosage: 500 MG, BID
     Route: 048
  6. CELECOXIB [Concomitant]
     Dosage: 100 MG, Q12H PRN
  7. DENOSUMAB [Concomitant]
     Dosage: 120 MG EVERY 6 WEEKS
     Route: 058
  8. WARFARIN [Concomitant]
     Dosage: 1 MG DAILY
     Route: 048
  9. CLINDAMYCIN [Concomitant]
     Dosage: 1 %, UNK
     Route: 061
  10. ATIVAN [Concomitant]
     Dosage: 1 MG, PRN
  11. ACCOMIN MULTIVITAMIN [Concomitant]
     Dosage: DAILY
     Route: 048
  12. OMEGA 3 [Concomitant]

REACTIONS (1)
  - Accidental overdose [Unknown]
